FAERS Safety Report 21036055 (Version 1)
Quarter: 2022Q3

REPORT INFORMATION
  Report Type: Spontaneous
  Country: US (occurrence: US)
  Receive Date: 20220701
  Receipt Date: 20220701
  Transmission Date: 20221027
  Serious: No
  Sender: FDA-Public Use
  Company Number: US-KRAMERLABS-2022-US-008239

PATIENT
  Age: 11 Year
  Sex: Female
  Weight: 48.08 kg

DRUGS (1)
  1. NIZORAL A-D [Suspect]
     Active Substance: KETOCONAZOLE
     Indication: Dandruff
     Dosage: USED 3X PER WEEK ON MON, TUES. AND FRI.
     Route: 061
     Dates: start: 20220201

REACTIONS (4)
  - Pruritus [Not Recovered/Not Resolved]
  - Skin ulcer [Not Recovered/Not Resolved]
  - Intentional product misuse [Unknown]
  - Inappropriate schedule of product administration [Unknown]

NARRATIVE: CASE EVENT DATE: 20220201
